FAERS Safety Report 7804757-9 (Version None)
Quarter: 2011Q4

REPORT INFORMATION
  Report Type: 
  Country: None (occurrence: None)
  Receive Date: 20111010
  Receipt Date: 20110929
  Transmission Date: 20120403
  Serious: Yes (Death)
  Sender: FDA-Public Use
  Company Number: US-CELGENEUS-163-21880-11043782

PATIENT
  Sex: Female

DRUGS (17)
  1. REVLIMID [Suspect]
     Indication: MULTIPLE MYELOMA
     Dosage: 25 MILLIGRAM
     Route: 048
     Dates: start: 20100714, end: 20101202
  2. THEOPHYLLINE [Concomitant]
     Dosage: 100 MILLIGRAM
     Route: 048
  3. LORTAB [Concomitant]
     Indication: PAIN
     Dosage: 5 MILLIGRAM
     Route: 048
     Dates: start: 20101202
  4. OXYGEN [Concomitant]
     Dosage: 2 LITERS
     Route: 045
  5. ACTOS [Concomitant]
     Dosage: 15-30MG
     Route: 048
  6. ZOCOR [Concomitant]
     Dosage: 40 MILLIGRAM
     Route: 048
     Dates: end: 20101202
  7. ASPIRIN [Concomitant]
     Dosage: 81 MILLIGRAM
     Route: 048
     Dates: end: 20101202
  8. DARVOCET [Concomitant]
     Dosage: 100 MILLIGRAM
     Route: 048
     Dates: start: 20101202
  9. LORTAB [Concomitant]
     Dosage: 10 MILLIGRAM
     Route: 048
  10. PROCRIT [Concomitant]
     Route: 065
  11. PREDNISONE [Concomitant]
     Dosage: 10 MILLIGRAM
     Route: 048
  12. DIOVAN [Concomitant]
     Dosage: 160 MILLIGRAM
     Route: 048
     Dates: end: 20101202
  13. DEXAMETHASONE [Concomitant]
     Dosage: 4 MILLIGRAM
     Route: 048
     Dates: end: 20101202
  14. NEXIUM [Concomitant]
     Dosage: 40 MILLIGRAM
     Route: 048
  15. ALBUTEROL [Concomitant]
     Indication: WHEEZING
     Dosage: 90 MICROGRAM
     Route: 055
  16. NORVASC [Concomitant]
     Dosage: 5 MILLIGRAM
     Route: 048
  17. TRICOR [Concomitant]
     Dosage: 145 MILLIGRAM
     Route: 048
     Dates: end: 20101202

REACTIONS (1)
  - NON-SMALL CELL LUNG CANCER METASTATIC [None]
